FAERS Safety Report 6048767-3 (Version None)
Quarter: 2009Q1

REPORT INFORMATION
  Report Type: 
  Country: None (occurrence: None)
  Receive Date: 20090123
  Receipt Date: 20090115
  Transmission Date: 20090719
  Serious: Yes (Other)
  Sender: FDA-Public Use
  Company Number: CA-NOVOPROD-283197

PATIENT
  Sex: Male

DRUGS (1)
  1. NOVOLIN GE 30/70 PENFILL [Suspect]
     Indication: TYPE 2 DIABETES MELLITUS
     Dosage: UNK U, BID
     Route: 058

REACTIONS (1)
  - SYNCOPE [None]
